FAERS Safety Report 8046064-8 (Version None)
Quarter: 2012Q1

REPORT INFORMATION
  Report Type: 
  Country: None (occurrence: None)
  Receive Date: 20120113
  Receipt Date: 20120109
  Transmission Date: 20120608
  Serious: No
  Sender: FDA-Public Use
  Company Number: US-PFIZER INC-2012008273

PATIENT
  Sex: Female
  Weight: 92.971 kg

DRUGS (6)
  1. ZOLOFT [Suspect]
     Indication: MENTAL DISORDER
     Dosage: UNK
     Dates: start: 19960101, end: 19960101
  2. LISINOPRIL [Concomitant]
     Indication: HYPERTENSION
     Dosage: 10 MG, DAILY
  3. PROTONIX [Suspect]
     Indication: GASTROOESOPHAGEAL REFLUX DISEASE
     Dosage: UNK
  4. ZANTAC [Suspect]
     Indication: GASTROOESOPHAGEAL REFLUX DISEASE
     Dosage: UNK
  5. METOPROLOL [Concomitant]
     Indication: HYPERTENSION
     Dosage: 50 MG, 2X/DAY
  6. LOVASTATIN [Concomitant]
     Indication: BLOOD CHOLESTEROL INCREASED
     Dosage: 40 MG TWO OF THEM DAILY AT BED TIME

REACTIONS (4)
  - PAIN [None]
  - DRUG CLEARANCE INCREASED [None]
  - EATING DISORDER SYMPTOM [None]
  - DRUG INEFFECTIVE [None]
